FAERS Safety Report 4308898-2 (Version None)
Quarter: 2004Q1

REPORT INFORMATION
  Report Type: 
  Country: None (occurrence: None)
  Receive Date: 20040302
  Receipt Date: 20040223
  Transmission Date: 20041129
  Serious: Yes (Death)
  Sender: FDA-Public Use
  Company Number: PHFR2004GB01127

PATIENT
  Age: 77 Year
  Sex: Male
  Weight: 84 kg

DRUGS (9)
  1. DICLOFENAC [Suspect]
     Indication: PAIN IN EXTREMITY
     Dosage: 50 MG, TID
     Route: 048
     Dates: start: 20040202
  2. FERROUS SULFATE TAB [Concomitant]
     Dosage: 1 OT, TID
     Route: 048
  3. RAMIPRIL [Concomitant]
     Dosage: 1 X DAILY
     Route: 048
  4. FRUSEMIDE [Concomitant]
     Dosage: 3 X EACH MORNING
     Route: 048
  5. CORO-NITRO SPRAY [Concomitant]
     Dosage: 1 PUFF AS NEEDED
     Route: 060
  6. GLICLAZIDE [Concomitant]
     Dosage: HALF A DAY
     Route: 065
  7. METFORMIN [Concomitant]
     Dosage: 1 OT, TID
     Route: 065
  8. ATORVASTATIN [Concomitant]
     Dosage: 1 AT NIGHT
     Route: 048
  9. ASPIRIN [Concomitant]
     Dosage: TAKE ONE DAILY
     Route: 048

REACTIONS (1)
  - RENAL FAILURE ACUTE [None]
